FAERS Safety Report 7174892-X (Version None)
Quarter: 2010Q4

REPORT INFORMATION
  Report Type: 
  Country: None (occurrence: None)
  Receive Date: 20101219
  Receipt Date: 20101215
  Transmission Date: 20110411
  Serious: Yes (Hospitalization)
  Sender: FDA-Public Use
  Company Number: US-BRISTOL-MYERS SQUIBB COMPANY-14962575

PATIENT
  Age: 44 Year
  Sex: Female
  Weight: 51 kg

DRUGS (17)
  1. REYATAZ [Suspect]
     Indication: HIV INFECTION
     Dates: start: 20090625, end: 20100121
  2. SUSTIVA [Suspect]
     Indication: HIV INFECTION
     Dosage: 22DEC08-24JUN09=600MG,24JUN09-25JUN09.,DURATION:184DAYS
     Route: 048
     Dates: start: 20081222, end: 20090623
  3. COMBIVIR [Suspect]
     Indication: HIV INFECTION
     Dosage: 22DEC08-24JUN09,24JUN09-25JUN09,25JUN09-
     Dates: start: 20081223, end: 20100121
  4. CENTRUM [Concomitant]
     Indication: MEDICAL DIET
     Dosage: RESTARTED ON NOV2009-29JAN2010
     Dates: start: 20070101, end: 20090501
  5. PARACETAMOL [Concomitant]
     Indication: PAIN
     Dosage: JUL-2 009 TO 20JUL09 FOR PAIN NECK AND SHOULDERS;RESTARTED ON OCT2009;30JAN-05FEB10
     Dates: start: 20090108, end: 20090720
  6. PARACETAMOL [Concomitant]
     Indication: PYREXIA
     Dosage: JUL-2 009 TO 20JUL09 FOR PAIN NECK AND SHOULDERS;RESTARTED ON OCT2009;30JAN-05FEB10
     Dates: start: 20090108, end: 20090720
  7. PARACETAMOL [Concomitant]
     Indication: HEADACHE
     Dosage: JUL-2 009 TO 20JUL09 FOR PAIN NECK AND SHOULDERS;RESTARTED ON OCT2009;30JAN-05FEB10
     Dates: start: 20090108, end: 20090720
  8. PARACETAMOL [Concomitant]
     Indication: MALAISE
     Dosage: JUL-2 009 TO 20JUL09 FOR PAIN NECK AND SHOULDERS;RESTARTED ON OCT2009;30JAN-05FEB10
     Dates: start: 20090108, end: 20090720
  9. TRIAMCINOLONE ACETONIDE [Concomitant]
     Indication: PAIN
     Dosage: 21-25DEC08,MAY09-21JUN09
     Dates: start: 20090501, end: 20090621
  10. TRIAMCINOLONE ACETONIDE [Concomitant]
     Indication: APHTHOUS STOMATITIS
     Dosage: 21-25DEC08,MAY09-21JUN09
     Dates: start: 20090501, end: 20090621
  11. FOLIC ACID [Concomitant]
     Indication: ANAEMIA
     Dosage: ALSO FROM 02JUL09 TO 10JUL09
     Dates: start: 20090422, end: 20090715
  12. CEFUROXIME [Concomitant]
     Indication: URINARY TRACT INFECTION
     Dates: start: 20090625, end: 20090630
  13. FERROUS SULFATE [Concomitant]
     Indication: MEDICAL DIET
     Dates: start: 20020101, end: 20090601
  14. PYRIDOXINE HCL [Concomitant]
     Indication: MEDICAL DIET
     Dates: start: 20020101, end: 20090601
  15. AMITRIPTYLINE HCL [Concomitant]
     Indication: MEDICAL DIET
     Dates: start: 20020101, end: 20090601
  16. VITAMINS + MINERALS [Concomitant]
     Indication: MEDICAL DIET
  17. ANTIBIOTICS [Concomitant]
     Indication: PAIN
     Dates: start: 20090501, end: 20090601

REACTIONS (3)
  - CALCULUS URETERIC [None]
  - HYDRONEPHROSIS [None]
  - NEPHROLITHIASIS [None]
